APPROVED DRUG PRODUCT: ACAMPROSATE CALCIUM
Active Ingredient: ACAMPROSATE CALCIUM
Strength: 333MG
Dosage Form/Route: TABLET, DELAYED RELEASE;ORAL
Application: A219904 | Product #001 | TE Code: AB
Applicant: BIONPHARMA INC
Approved: Sep 18, 2025 | RLD: No | RS: No | Type: RX